FAERS Safety Report 6578635-X (Version None)
Quarter: 2010Q1

REPORT INFORMATION
  Report Type: 
  Country: None (occurrence: None)
  Receive Date: 20100211
  Receipt Date: 20100203
  Transmission Date: 20100710
  Serious: Yes (Hospitalization, Other)
  Sender: FDA-Public Use
  Company Number: PHHO2010CY00504

PATIENT
  Sex: Male
  Weight: 70 kg

DRUGS (3)
  1. AFINITOR [Suspect]
     Indication: METASTATIC RENAL CELL CARCINOMA
     Dosage: 10 MG DAILY
     Route: 048
     Dates: end: 20091123
  2. AFINITOR [Suspect]
     Dosage: 5 MG DAILY
     Route: 048
     Dates: start: 20091202, end: 20100104
  3. AFINITOR [Suspect]
     Dosage: 5 MG DAILY
     Route: 048
     Dates: start: 20100202

REACTIONS (5)
  - FALL [None]
  - FEBRILE NEUTROPENIA [None]
  - FEMUR FRACTURE [None]
  - METASTASES TO BONE MARROW [None]
  - SURGERY [None]
